FAERS Safety Report 9494712 (Version 1)
Quarter: 2013Q3

REPORT INFORMATION
  Report Type: Spontaneous
  Country: US (occurrence: None)
  Receive Date: 20130830
  Receipt Date: 20130830
  Transmission Date: 20140515
  Serious: Yes (Other)
  Sender: FDA-Public Use
  Company Number: None

PATIENT
  Age: 63 Year
  Sex: Female
  Weight: 65.77 kg

DRUGS (1)
  1. TECFIDERA [Suspect]
     Indication: MULTIPLE SCLEROSIS
     Dosage: 120 MG TO 240, 1 TO 2 TO 3 INCREASING DOSE, ORAL
     Route: 048
     Dates: start: 201307, end: 201308

REACTIONS (5)
  - Dizziness [None]
  - Depression [None]
  - Fall [None]
  - Syncope [None]
  - Crying [None]
